FAERS Safety Report 8976115 (Version 2)
Quarter: 2013Q4

REPORT INFORMATION
  Report Type: Spontaneous
  Country: US (occurrence: US)
  Receive Date: 20121219
  Receipt Date: 20131008
  Transmission Date: 20140711
  Serious: No
  Sender: FDA-Public Use
  Company Number: US-AMGEN-USASP2012067596

PATIENT
  Age: 64 Year
  Sex: Female
  Weight: 89.8 kg

DRUGS (8)
  1. PROLIA [Suspect]
     Indication: OSTEOPOROSIS POSTMENOPAUSAL
     Dosage: 60 MG, ONE TIME DOSE
     Route: 058
     Dates: start: 20120913
  2. IMITREX                            /01044801/ [Concomitant]
     Indication: MIGRAINE
     Dosage: 50 MG, UNK
  3. TYLENOL                            /00020001/ [Concomitant]
  4. VITAMIN D                          /00107901/ [Concomitant]
     Dosage: 2000 G, QD
     Route: 048
     Dates: start: 2012
  5. CALCIUM +D                         /00944201/ [Concomitant]
     Dosage: UNK UNK, QD
     Route: 048
  6. NEURONTIN [Concomitant]
     Dosage: 300 MG, BID
     Route: 048
     Dates: start: 2011
  7. SYNTHROID [Concomitant]
     Dosage: 0.025 MG, QD
     Route: 048
     Dates: start: 2006
  8. ELAVIL                             /00002202/ [Concomitant]
     Dosage: 50 MG, QHS
     Route: 048
     Dates: start: 2002

REACTIONS (13)
  - Chills [Recovered/Resolved]
  - Hyperhidrosis [Recovered/Resolved]
  - Neck pain [Recovered/Resolved]
  - Migraine [Recovered/Resolved]
  - Rash macular [Unknown]
  - Contusion [Unknown]
  - Vein disorder [Unknown]
  - Dysstasia [Unknown]
  - Pain [Not Recovered/Not Resolved]
  - Muscle spasms [Recovered/Resolved]
  - Influenza like illness [Recovered/Resolved]
  - Asthenia [Recovered/Resolved]
  - Pain in extremity [Recovered/Resolved]
